FAERS Safety Report 19086006 (Version 1)
Quarter: 2021Q2

REPORT INFORMATION
  Report Type: Report from Study
  Country: TR (occurrence: TR)
  Receive Date: 20210402
  Receipt Date: 20210402
  Transmission Date: 20210717
  Serious: Yes (Other)
  Sender: FDA-Public Use
  Company Number: TR-JNJFOC-20210356919

PATIENT

DRUGS (1)
  1. STELARA [Suspect]
     Active Substance: USTEKINUMAB
     Indication: PSORIASIS
     Route: 058

REACTIONS (6)
  - Adverse reaction [Unknown]
  - Drug ineffective [Unknown]
  - Therapy non-responder [Unknown]
  - Hypertension [Unknown]
  - Idiopathic intracranial hypertension [Unknown]
  - Flushing [Unknown]
